FAERS Safety Report 7422652-4 (Version None)
Quarter: 2011Q2

REPORT INFORMATION
  Report Type: 
  Country: None (occurrence: None)
  Receive Date: 20110419
  Receipt Date: 20110413
  Transmission Date: 20111010
  Serious: Yes (Hospitalization, Other)
  Sender: FDA-Public Use
  Company Number: US-AMGEN-USASP2011014782

PATIENT
  Age: 22 Year
  Sex: Male

DRUGS (3)
  1. IMMUNOGLOBULINS [Concomitant]
  2. CORTICOSTEROIDS [Concomitant]
     Dosage: UNK
     Dates: start: 20101020
  3. NPLATE [Suspect]
     Indication: IDIOPATHIC THROMBOCYTOPENIC PURPURA
     Dates: start: 20101210

REACTIONS (2)
  - ASTHENIA [None]
  - LYMPHADENOPATHY [None]
